FAERS Safety Report 10379833 (Version 1)
Quarter: 2014Q1

REPORT INFORMATION
  Report Type: Spontaneous
  Country: US (occurrence: None)
  Receive Date: 20140306
  Receipt Date: 20140306
  Transmission Date: 20141002
  Serious: Yes (Hospitalization)
  Sender: FDA-Public Use
  Company Number: 163-21880-13022266

PATIENT
  Age: 49 Year
  Sex: Female
  Weight: 64 kg

DRUGS (15)
  1. REVLIMID (LENALIDOMIDE) (CAPSULES) [Suspect]
     Route: 048
     Dates: start: 20110912
  2. DEXAMETHASONE (DEXAMETHASONE) [Suspect]
     Indication: PLASMA CELL MYELOMA
     Route: 048
     Dates: start: 20110912
  3. ELOTUZUMAB [Suspect]
     Indication: PLASMA CELL MYELOMA
     Route: 042
     Dates: start: 20110912
  4. TYLENOL (PARACETAMOL) [Concomitant]
  5. TAGAMET (CIMETIDINE) [Concomitant]
  6. AREDIA (PAMIDRONATE DISODIUM) [Concomitant]
  7. UNISOM NIGHTIME SLEEP A/D (DOXYLAMINE SUCCINATE) [Concomitant]
  8. STOOL SOFTENER (DOCUSATE SODIUM) [Concomitant]
  9. HYDROCODONE/ACETAMINOPHEN (REMEDEINE) [Concomitant]
  10. COLACE (DOCUSATE SODIUM) [Concomitant]
  11. ZOFRAN (ONDANSETRON HYDROCHLORIDE) [Concomitant]
  12. VALACYCLOVIR HCL [Concomitant]
  13. ZOVIRAX (ACICLOVIR) [Concomitant]
  14. CLARITHROMYCIN [Concomitant]
  15. LEVOFLOXACIN [Concomitant]

REACTIONS (1)
  - Pneumonia [None]
